FAERS Safety Report 19802522 (Version 1)
Quarter: 2021Q3

REPORT INFORMATION
  Report Type: Spontaneous
  Country: CL (occurrence: CL)
  Receive Date: 20210908
  Receipt Date: 20210908
  Transmission Date: 20211014
  Serious: Yes (Hospitalization)
  Sender: FDA-Public Use
  Company Number: CL-B.I. PHARMACEUTICALS,INC./RIDGEFIELD-2021-BI-124793

PATIENT
  Age: 86 Year
  Sex: Female

DRUGS (8)
  1. BROMURO DE IPRATROPIO [Concomitant]
     Active Substance: IPRATROPIUM BROMIDE
     Indication: ASTHMA
     Dosage: 2 PUFF 3 TIMES A DAY VIA INHALATION
     Route: 055
  2. CEFTRIAXONE [CEFTRIAXONE SODIUM] [Concomitant]
     Active Substance: CEFTRIAXONE SODIUM
     Indication: PNEUMONIA
     Route: 042
     Dates: start: 20210706
  3. PREDNISONA [Concomitant]
     Active Substance: PREDNISONE
     Indication: ASTHMA
     Route: 048
  4. ATORVASTATIN [Concomitant]
     Active Substance: ATORVASTATIN
     Indication: ATRIAL FIBRILLATION
     Route: 048
  5. PRADAXA [Suspect]
     Active Substance: DABIGATRAN ETEXILATE MESYLATE
     Indication: ATRIAL FIBRILLATION
     Route: 048
     Dates: start: 20210703, end: 20210708
  6. SALBUTAMOL [Concomitant]
     Active Substance: ALBUTEROL
     Indication: ASTHMA
     Dosage: 2 PUFF 3 TIMES A DAY VIA INHALATION
     Route: 055
  7. ASPIRIN. [Concomitant]
     Active Substance: ASPIRIN
     Indication: ATRIAL FIBRILLATION
     Route: 048
  8. CARVEDILOL. [Concomitant]
     Active Substance: CARVEDILOL
     Indication: ATRIAL FIBRILLATION
     Route: 048

REACTIONS (3)
  - COVID-19 [Unknown]
  - Upper gastrointestinal haemorrhage [Unknown]
  - Melaena [Unknown]

NARRATIVE: CASE EVENT DATE: 20210707
